FAERS Safety Report 6738112-X (Version None)
Quarter: 2010Q2

REPORT INFORMATION
  Report Type: 
  Country: None (occurrence: None)
  Receive Date: 20100520
  Receipt Date: 20100511
  Transmission Date: 20101027
  Serious: Yes (Other)
  Sender: FDA-Public Use
  Company Number: 2009JP000886

PATIENT
  Age: 73 Year
  Sex: Female

DRUGS (5)
  1. PROGRAF [Suspect]
     Indication: LUNG TRANSPLANT
  2. BASILIXIMAB (BASILIXIMAB) FORMULATION [Concomitant]
  3. MYCOPHENOLATE MOFETIL (MYCOPHENOLATE  MOFETIL) FORMULATION [Concomitant]
  4. METHYPREDNISOLONE (METHYLPREDNISOLONE) FORMULATION [Concomitant]
  5. PREDNISOLONE (PREDNISOLONE) FORMULATION [Concomitant]

REACTIONS (8)
  - ASCITES [None]
  - CHOLESTASIS [None]
  - HAEMORRHAGIC DIATHESIS [None]
  - HEPATOTOXICITY [None]
  - HISTIOCYTOSIS HAEMATOPHAGIC [None]
  - LIVER DISORDER [None]
  - NO THERAPEUTIC RESPONSE [None]
  - PANCYTOPENIA [None]
